FAERS Safety Report 7353233-9 (Version None)
Quarter: 2011Q1

REPORT INFORMATION
  Report Type: 
  Country: None (occurrence: None)
  Receive Date: 20110315
  Receipt Date: 20110312
  Transmission Date: 20110831
  Serious: Yes (Hospitalization)
  Sender: FDA-Public Use
  Company Number: US-PFIZER INC-2011001965

PATIENT
  Sex: Male
  Weight: 91.1 kg

DRUGS (10)
  1. ZOFRAN [Concomitant]
  2. GEMCITABINE [Suspect]
     Indication: METASTATIC RENAL CELL CARCINOMA
     Dosage: 600 MG/M2, UNK
     Dates: start: 20100625, end: 20101228
  3. COMPAZINE [Concomitant]
  4. NEULASTA [Concomitant]
  5. SUTENT [Suspect]
     Indication: METASTATIC RENAL CELL CARCINOMA
     Dosage: 37.5 MG, 1X/DAY
     Dates: start: 20100625, end: 20110104
  6. OXYCODONE [Concomitant]
  7. FENTANYL [Concomitant]
     Dosage: PATCH
  8. FINASTERIDE [Concomitant]
  9. NORVASC [Concomitant]
  10. DOCUSATE [Concomitant]

REACTIONS (13)
  - HEART RATE INCREASED [None]
  - ACTIVATED PARTIAL THROMBOPLASTIN TIME PROLONGED [None]
  - BLOOD CREATINE PHOSPHOKINASE MB INCREASED [None]
  - HAEMOGLOBIN DECREASED [None]
  - HAEMATOCRIT DECREASED [None]
  - FATIGUE [None]
  - TROPONIN T INCREASED [None]
  - BLOOD UREA INCREASED [None]
  - ATRIAL FLUTTER [None]
  - PROTHROMBIN TIME PROLONGED [None]
  - BLOOD SODIUM DECREASED [None]
  - BLOOD CREATININE INCREASED [None]
  - BLOOD CALCIUM DECREASED [None]
